FAERS Safety Report 19320811 (Version 1)
Quarter: 2021Q2

REPORT INFORMATION
  Report Type: Spontaneous
  Country: US (occurrence: US)
  Receive Date: 20210528
  Receipt Date: 20210528
  Transmission Date: 20210717
  Serious: No
  Sender: FDA-Public Use
  Company Number: None

PATIENT
  Age: 70 Year
  Sex: Male

DRUGS (1)
  1. EYLEA [Suspect]
     Active Substance: AFLIBERCEPT

REACTIONS (8)
  - Ocular hyperaemia [None]
  - Pain [None]
  - Pruritus [None]
  - Burning sensation [None]
  - Rhinorrhoea [None]
  - Vision blurred [None]
  - Feeling abnormal [None]
  - Headache [None]
